FAERS Safety Report 9698001 (Version 1)
Quarter: 2013Q4

REPORT INFORMATION
  Report Type: Spontaneous
  Country: GB (occurrence: None)
  Receive Date: 20131118
  Receipt Date: 20131118
  Transmission Date: 20140711
  Serious: Yes (Death, Other)
  Sender: FDA-Public Use
  Company Number: GB-ALKEM-000227

PATIENT
  Age: 40 Week
  Sex: 0

DRUGS (2)
  1. QUETIAPINE [Suspect]
     Indication: BIPOLAR DISORDER
     Route: 064
  2. SERTRALINE [Suspect]
     Indication: BIPOLAR DISORDER
     Route: 064

REACTIONS (2)
  - Stillbirth [None]
  - Maternal drugs affecting foetus [None]
